FAERS Safety Report 6683984-0 (Version None)
Quarter: 2010Q2

REPORT INFORMATION
  Report Type: 
  Country: None (occurrence: None)
  Receive Date: 20100416
  Receipt Date: 20100406
  Transmission Date: 20101027
  Serious: Yes (Other)
  Sender: FDA-Public Use
  Company Number: IE-PFIZER INC-2010043333

PATIENT
  Sex: Female

DRUGS (1)
  1. GENOTROPIN [Suspect]
     Dosage: 0.6 MG, NIGHTLY
     Dates: start: 20071122

REACTIONS (2)
  - ASTHENIA [None]
  - DEPRESSED MOOD [None]
